FAERS Safety Report 9915126 (Version 2)
Quarter: 2014Q1

REPORT INFORMATION
  Report Type: Spontaneous
  Country: US (occurrence: US)
  Receive Date: 20140220
  Receipt Date: 20140319
  Transmission Date: 20141002
  Serious: Yes (Hospitalization, Other)
  Sender: FDA-Public Use
  Company Number: US-ELI_LILLY_AND_COMPANY-US201402004209

PATIENT
  Sex: Female

DRUGS (1)
  1. HUMALOG LISPRO [Suspect]
     Indication: DIABETES MELLITUS
     Dosage: UNK, UNKNOWN
     Route: 065

REACTIONS (3)
  - Cerebrovascular accident [Unknown]
  - Pituitary tumour [Unknown]
  - Memory impairment [Unknown]
